FAERS Safety Report 18158040 (Version 1)
Quarter: 2020Q3

REPORT INFORMATION
  Report Type: Spontaneous
  Country: US (occurrence: US)
  Receive Date: 20200817
  Receipt Date: 20200817
  Transmission Date: 20201103
  Serious: Yes (Other)
  Sender: FDA-Public Use
  Company Number: US-MEDEXUS PHARMA, INC.-2020MED00036

PATIENT
  Age: 42 Year
  Sex: Female
  Weight: 99.77 kg

DRUGS (5)
  1. RASUVO [Suspect]
     Active Substance: METHOTREXATE SODIUM
     Indication: RHEUMATOID ARTHRITIS
     Dosage: 25 MG, 1X/WEEK (THURSDAYS) INJECTED INTO UPPER LEG/THIGH, ALTERNATE
     Dates: start: 201905, end: 20200130
  2. RASUVO [Suspect]
     Active Substance: METHOTREXATE SODIUM
     Dosage: 25 MG, 1X/WEEK (WEDNESDAYS) INJECTED INTO ALTERNATE UPPER LEG/THIGH
     Dates: start: 20200213
  3. CYMBALTA [Concomitant]
     Active Substance: DULOXETINE HYDROCHLORIDE
  4. LYRICA [Concomitant]
     Active Substance: PREGABALIN
  5. LEUCOVORIN. [Concomitant]
     Active Substance: LEUCOVORIN

REACTIONS (10)
  - Gait disturbance [Recovered/Resolved]
  - Scab [Not Recovered/Not Resolved]
  - Folliculitis [Unknown]
  - Breast abscess [Recovered/Resolved]
  - Mental impairment [Recovering/Resolving]
  - Dizziness [Recovering/Resolving]
  - Immune system disorder [Unknown]
  - Thinking abnormal [Recovering/Resolving]
  - Influenza [Recovered/Resolved]
  - Nausea [Recovering/Resolving]

NARRATIVE: CASE EVENT DATE: 202001
